FAERS Safety Report 15574311 (Version 1)
Quarter: 2018Q4

REPORT INFORMATION
  Report Type: Spontaneous
  Country: US (occurrence: US)
  Receive Date: 20181101
  Receipt Date: 20181101
  Transmission Date: 20190205
  Serious: No
  Sender: FDA-Public Use
  Company Number: US-SA-2018SA299119

PATIENT
  Age: 31 Year
  Sex: Female

DRUGS (11)
  1. FABRAZYME [Suspect]
     Active Substance: AGALSIDASE BETA
     Indication: FABRY^S DISEASE
     Dosage: 75 MG, QOW
     Route: 041
     Dates: start: 20180508
  2. NORMAL SALINE [Concomitant]
     Active Substance: SODIUM CHLORIDE
     Indication: FLUSHING
     Dosage: 10 ML, UNK
     Route: 042
     Dates: start: 20180410
  3. ACETAMINOPHEN. [Concomitant]
     Active Substance: ACETAMINOPHEN
     Indication: PREMEDICATION
     Dosage: 500 MG, UNK
     Route: 048
     Dates: start: 20180410
  4. PRENATAL [FOLIC ACID;IRON] [Concomitant]
     Dosage: 1 DF, QD
     Route: 048
     Dates: start: 20160502
  5. EPINEPHRINE. [Concomitant]
     Active Substance: EPINEPHRINE
     Indication: ANAPHYLACTIC REACTION
     Dosage: 0.3 MG, QD
     Route: 030
     Dates: start: 20180410
  6. TUMS [Concomitant]
     Active Substance: CALCIUM CARBONATE
     Dosage: , 2 CHEWABLE TABS 2-3 TIMES DAILY AS NEEDED
     Dates: start: 20171126
  7. DIPHENHYDRAMINE. [Concomitant]
     Active Substance: DIPHENHYDRAMINE
     Indication: ANAPHYLACTIC REACTION
     Dosage: 25 MG, UNK
     Route: 048
     Dates: start: 20180410
  8. ADVIL [IBUPROFEN] [Concomitant]
     Active Substance: IBUPROFEN
     Dosage: 1 DF, PRN
     Route: 048
     Dates: start: 20170525
  9. PROBIOTICS NOS [Concomitant]
     Active Substance: PROBIOTICS NOS
     Dosage: 1 DF, BID
     Route: 048
     Dates: start: 20180619
  10. LIDOCAINE. [Concomitant]
     Active Substance: LIDOCAINE
     Indication: PREMEDICATION
     Dosage: UNK UNK, UNK, 1 APP
     Route: 061
     Dates: start: 20180410
  11. HEPARIN [Concomitant]
     Active Substance: HEPARIN SODIUM
     Indication: FLUSHING
     Dosage: 500 U, UNK
     Route: 042
     Dates: start: 20180410

REACTIONS (2)
  - Back pain [Unknown]
  - Burning feet syndrome [Unknown]
